FAERS Safety Report 24572146 (Version 1)
Quarter: 2024Q4

REPORT INFORMATION
  Report Type: Spontaneous
  Country: US (occurrence: None)
  Receive Date: 20241030
  Receipt Date: 20241030
  Transmission Date: 20250115
  Serious: No
  Sender: Public
  Company Number: None

PATIENT
  Age: 9 Year
  Sex: Male
  Weight: 36.29 kg

DRUGS (3)
  1. NOVOLOG [Suspect]
     Active Substance: INSULIN ASPART
  2. Tandem Tslim X2 [Concomitant]
  3. Dexcom G7 [Concomitant]

REACTIONS (4)
  - Device information output issue [None]
  - Circumstance or information capable of leading to medication error [None]
  - Device failure [None]
  - Device use issue [None]

NARRATIVE: CASE EVENT DATE: 20241030
